FAERS Safety Report 26187269 (Version 1)
Quarter: 2025Q4

REPORT INFORMATION
  Report Type: Spontaneous
  Country: EU (occurrence: EU)
  Receive Date: 20251222
  Receipt Date: 20251222
  Transmission Date: 20260119
  Serious: Yes (Other)
  Sender: MYLAN
  Company Number: None

PATIENT
  Age: 26 Year
  Sex: Male

DRUGS (4)
  1. MOXIFLOXACIN [Suspect]
     Active Substance: MOXIFLOXACIN
     Indication: Urethritis
     Dosage: 400 MILLIGRAM, QD
     Route: 061
     Dates: start: 20251026, end: 20251103
  2. MOXIFLOXACIN [Suspect]
     Active Substance: MOXIFLOXACIN
     Dosage: 400 MILLIGRAM, QD
     Route: 048
     Dates: start: 20251026, end: 20251103
  3. MOXIFLOXACIN [Suspect]
     Active Substance: MOXIFLOXACIN
     Dosage: 400 MILLIGRAM, QD
     Route: 048
     Dates: start: 20251026, end: 20251103
  4. MOXIFLOXACIN [Suspect]
     Active Substance: MOXIFLOXACIN
     Dosage: 400 MILLIGRAM, QD
     Route: 061
     Dates: start: 20251026, end: 20251103

REACTIONS (3)
  - Feeling abnormal [Recovered/Resolved]
  - Disturbance in attention [Recovered/Resolved]
  - Anxiety [Recovered/Resolved]

NARRATIVE: CASE EVENT DATE: 20251103
